FAERS Safety Report 7419042-7 (Version None)
Quarter: 2011Q2

REPORT INFORMATION
  Report Type: 
  Country: None (occurrence: None)
  Receive Date: 20110415
  Receipt Date: 20110411
  Transmission Date: 20111010
  Serious: Yes (Other)
  Sender: FDA-Public Use
  Company Number: US-PFIZER INC-2011079791

PATIENT
  Sex: Female
  Weight: 154 kg

DRUGS (9)
  1. CELEBREX [Suspect]
     Indication: ARTHRITIS
  2. CELEBREX [Suspect]
     Indication: FIBROMYALGIA
  3. LISINOPRIL [Concomitant]
     Indication: HYPERTENSION
     Dosage: 40 MG, 2X/DAY
     Route: 048
  4. CELEBREX [Suspect]
     Indication: SLEEP DISORDER
     Dosage: 200 MG, 3X/DAY
     Dates: end: 20110101
  5. CELEBREX [Suspect]
     Indication: MYOSITIS
     Dosage: 100 MG, 2X/DAY
     Route: 048
     Dates: start: 20030101
  6. LYRICA [Suspect]
     Indication: SYSTEMIC LUPUS ERYTHEMATOSUS
     Dosage: 150 MG, 3X/DAY
     Route: 048
     Dates: end: 20110101
  7. LYRICA [Suspect]
     Indication: FIBROMYALGIA
  8. CELEBREX [Suspect]
     Indication: SYSTEMIC LUPUS ERYTHEMATOSUS
  9. TIOTROPIUM BROMIDE [Concomitant]
     Indication: DYSPNOEA
     Dosage: UNK

REACTIONS (1)
  - MYOCARDIAL INFARCTION [None]
